FAERS Safety Report 5757648-1 (Version None)
Quarter: 2008Q2

REPORT INFORMATION
  Report Type: 
  Country: None (occurrence: None)
  Receive Date: 20080603
  Receipt Date: 20080522
  Transmission Date: 20081010
  Serious: Yes (Hospitalization)
  Sender: FDA-Public Use
  Company Number: JP-PFIZER INC-2008045162

PATIENT
  Age: 36 Year
  Sex: Male

DRUGS (2)
  1. CYTOTEC [Suspect]
     Indication: PYREXIA
     Dosage: DAILY DOSE:100MCG-FREQ:PRN
     Route: 048
     Dates: start: 20080514, end: 20080520
  2. LOXONIN [Suspect]
     Indication: PYREXIA
     Dosage: DAILY DOSE:60MG-FREQ:PRN
     Route: 048
     Dates: start: 20080514, end: 20080520

REACTIONS (2)
  - DRUG ERUPTION [None]
  - OFF LABEL USE [None]
